FAERS Safety Report 7216992-1 (Version None)
Quarter: 2011Q1

REPORT INFORMATION
  Report Type: 
  Country: None (occurrence: None)
  Receive Date: 20110110
  Receipt Date: 20101118
  Transmission Date: 20110831
  Serious: No
  Sender: FDA-Public Use
  Company Number: A0877242A

PATIENT
  Age: 50 Year
  Sex: Female

DRUGS (5)
  1. REQUIP XL [Suspect]
     Indication: PARKINSON'S DISEASE
     Dosage: 2MG PER DAY
     Route: 048
     Dates: start: 20100804
  2. AZILECT [Concomitant]
  3. NASONEX [Concomitant]
  4. CLARITIN [Concomitant]
  5. SEASONIQUE [Concomitant]

REACTIONS (5)
  - ALOPECIA [None]
  - WEIGHT DECREASED [None]
  - DIZZINESS POSTURAL [None]
  - ABDOMINAL PAIN UPPER [None]
  - NAUSEA [None]
